FAERS Safety Report 18958728 (Version 2)
Quarter: 2021Q2

REPORT INFORMATION
  Report Type: Spontaneous
  Country: US (occurrence: US)
  Receive Date: 20210302
  Receipt Date: 20210401
  Transmission Date: 20210717
  Serious: No
  Sender: FDA-Public Use
  Company Number: US-ELI_LILLY_AND_COMPANY-US202102004111

PATIENT
  Age: 67 Year
  Sex: Female

DRUGS (2)
  1. BAMLANIVIMAB 700MG [Suspect]
     Active Substance: BAMLANIVIMAB
     Indication: COVID-19
     Dosage: UNK, SINGLE
     Route: 042
     Dates: start: 20210202, end: 20210202
  2. TYLENOL [Concomitant]
     Active Substance: ACETAMINOPHEN
     Indication: PRODUCT USED FOR UNKNOWN INDICATION
     Dosage: UNK, UNKNOWN
     Route: 065

REACTIONS (9)
  - Dizziness [Not Recovered/Not Resolved]
  - Lip swelling [Recovering/Resolving]
  - Headache [Recovering/Resolving]
  - Hypotension [Unknown]
  - Infusion related reaction [Recovering/Resolving]
  - Dehydration [Unknown]
  - Swelling [Recovering/Resolving]
  - Nausea [Recovering/Resolving]
  - Mouth swelling [Recovering/Resolving]

NARRATIVE: CASE EVENT DATE: 20210203
